FAERS Safety Report 4770985-2 (Version None)
Quarter: 2005Q3

REPORT INFORMATION
  Report Type: 
  Country: None (occurrence: None)
  Receive Date: 20050914
  Receipt Date: 20050901
  Transmission Date: 20060218
  Serious: Yes (Hospitalization)
  Sender: FDA-Public Use
  Company Number: 2005123948

PATIENT
  Age: 42 Year
  Sex: Male
  Weight: 65.8 kg

DRUGS (12)
  1. PREDNISONE [Suspect]
     Indication: RENAL TRANSPLANT
     Dosage: 10 MG (1 D), ORAL
     Route: 048
  2. CELLCEPT [Suspect]
     Indication: RENAL TRANSPLANT
     Dosage: 1.5 GRAM (1 D), ORAL
     Route: 048
     Dates: start: 20041221
  3. TACROLIMUS (TACROLIMUS) [Concomitant]
  4. COTRIMOXAZOL (SULFAMETHOXOXAZOLE, TRIMETHOPRIM) [Concomitant]
  5. OMEPRAZOLE [Concomitant]
  6. DOCUSATE SODIUM (DOCUSATE SODIUM) [Concomitant]
  7. ADALAT [Concomitant]
  8. MOVICOL (MACROGOL, POTASSIUM CHLORIDE, SODIUM BICARBONATE, SODIUM CHLO [Concomitant]
  9. ACETAMINOPHEN [Concomitant]
  10. ACYCLOVIR [Concomitant]
  11. MAGNASPART (MAGENSIUM ASPARTATE) [Concomitant]
  12. TRAMADOL HCL [Concomitant]

REACTIONS (1)
  - DEPRESSION [None]
